FAERS Safety Report 5676434-4 (Version None)
Quarter: 2008Q1

REPORT INFORMATION
  Report Type: 
  Country: None (occurrence: None)
  Receive Date: 20080321
  Receipt Date: 20080312
  Transmission Date: 20080703
  Serious: Yes (Death)
  Sender: FDA-Public Use
  Company Number: AT-PFIZER INC-2008024327

PATIENT
  Age: 55 Year
  Sex: Male

DRUGS (1)
  1. MEDRATE SOLUBILE 40/125/500/1000 [Suspect]
     Indication: SYSTEMIC LUPUS ERYTHEMATOSUS
     Dosage: DAILY DOSE:40MG

REACTIONS (1)
  - TUBERCULOSIS [None]
